FAERS Safety Report 7936403-8 (Version None)
Quarter: 2011Q4

REPORT INFORMATION
  Report Type: 
  Country: None (occurrence: None)
  Receive Date: 20111123
  Receipt Date: 20111121
  Transmission Date: 20120403
  Serious: Yes (Disabling, Other)
  Sender: FDA-Public Use
  Company Number: US-PFIZER INC-2011284989

PATIENT
  Sex: Female
  Weight: 40.816 kg

DRUGS (7)
  1. ZOLOFT [Suspect]
     Indication: DEPRESSION
     Dosage: 50 MG, 1X/DAY
     Route: 048
     Dates: start: 20100801, end: 20101201
  2. HUMIRA [Concomitant]
     Indication: RHEUMATOID ARTHRITIS
     Dosage: UNK
  3. ZOLOFT [Suspect]
     Dosage: 150 MG, 1X/DAY
     Route: 048
     Dates: start: 20110301, end: 20110601
  4. METHOTREXATE [Concomitant]
     Indication: RHEUMATOID ARTHRITIS
     Dosage: UNK
  5. ZOLOFT [Suspect]
     Dosage: 100 MG, 1X/DAY
     Route: 048
     Dates: start: 20101201, end: 20110301
  6. ZOLOFT [Suspect]
     Dosage: 100 MG, 2X/DAY
     Route: 048
     Dates: start: 20110601
  7. KLONOPIN [Concomitant]
     Indication: ANXIETY
     Dosage: UNK

REACTIONS (4)
  - DEPRESSION [None]
  - PSYCHOSOMATIC DISEASE [None]
  - POST-TRAUMATIC STRESS DISORDER [None]
  - HEMIPLEGIA [None]
